FAERS Safety Report 13908754 (Version 2)
Quarter: 2017Q4

REPORT INFORMATION
  Report Type: Spontaneous
  Country: US (occurrence: US)
  Receive Date: 20170827
  Receipt Date: 20171010
  Transmission Date: 20180320
  Serious: No
  Sender: FDA-Public Use
  Company Number: PHEH2017US026365

PATIENT
  Age: 60 Year
  Sex: Female

DRUGS (2)
  1. CLONAZEPAM TABLETS, USP [Suspect]
     Active Substance: CLONAZEPAM
     Indication: PANIC ATTACK
     Dosage: 0.5 MG, UNK
     Route: 065
  2. CLONAZEPAM TABLETS, USP [Suspect]
     Active Substance: CLONAZEPAM
     Indication: DEPRESSIVE SYMPTOM

REACTIONS (2)
  - Drug ineffective [Unknown]
  - Abdominal discomfort [Unknown]
